FAERS Safety Report 22108598 (Version 1)
Quarter: 2023Q1

REPORT INFORMATION
  Report Type: Spontaneous
  Country: US (occurrence: None)
  Receive Date: 20230316
  Receipt Date: 20230316
  Transmission Date: 20230418
  Serious: Yes (Other)
  Sender: FDA-Public Use
  Company Number: None

PATIENT
  Age: 40 Year
  Sex: Female
  Weight: 99 kg

DRUGS (5)
  1. BUPRENORPHINE AND NALOXONE SUBLINGUAL FILM [Suspect]
     Active Substance: BUPRENORPHINE HYDROCHLORIDE\NALOXONE HYDROCHLORIDE
     Indication: Drug abuser
     Dosage: OTHER QUANTITY : 2 60;?FREQUENCY : TWICE A DAY;?
     Route: 060
  2. Suboxion 8/2mg 2x daily [Concomitant]
  3. Advil [Concomitant]
  4. ASPIRIN [Concomitant]
     Active Substance: ASPIRIN
  5. BENADRYL [Concomitant]
     Active Substance: DIPHENHYDRAMINE HYDROCHLORIDE

REACTIONS (4)
  - Tooth disorder [None]
  - Tooth fracture [None]
  - Therapeutic product effect variable [None]
  - Product substitution issue [None]

NARRATIVE: CASE EVENT DATE: 20200420
